FAERS Safety Report 8033273-7 (Version None)
Quarter: 2012Q1

REPORT INFORMATION
  Report Type: 
  Country: None (occurrence: None)
  Receive Date: 20120110
  Receipt Date: 20111230
  Transmission Date: 20120608
  Serious: Yes (Life-Threatening, Hospitalization)
  Sender: FDA-Public Use
  Company Number: US-UCBSA-048528

PATIENT
  Age: 71 Year
  Sex: Male
  Weight: 47.63 kg

DRUGS (40)
  1. ALBUTEROL SULFATE [Concomitant]
     Indication: CHRONIC OBSTRUCTIVE PULMONARY DISEASE
     Dosage: 2 PUFFS AS NECESSARY
     Route: 055
  2. BROVANA [Concomitant]
  3. FLUTICASONE FUROATE [Concomitant]
     Indication: HYPERSENSITIVITY
     Dosage: 2 SPRAY INHALATION DAILY EACH NOSTRIL
     Route: 055
  4. MESALAMINE [Concomitant]
     Indication: CROHN'S DISEASE
     Route: 048
     Dates: start: 20080624
  5. PREDNISONE TAB [Concomitant]
     Indication: CHRONIC OBSTRUCTIVE PULMONARY DISEASE
     Route: 048
     Dates: start: 20100214
  6. PREDNISONE TAB [Concomitant]
     Dates: start: 19991203, end: 20000609
  7. ADVAIR DISKUS 100/50 [Concomitant]
     Indication: CHRONIC OBSTRUCTIVE PULMONARY DISEASE
     Dosage: 250/50 MG TWO TIME DAILY
     Route: 055
  8. POTASSIUM CHLORIDE [Concomitant]
     Route: 048
  9. ENTOCORT EC [Concomitant]
     Indication: CROHN'S DISEASE
     Route: 048
     Dates: start: 20090121
  10. PREDNISONE TAB [Concomitant]
     Dates: start: 19991203, end: 20000609
  11. MAXZIDE [Concomitant]
     Dosage: 75/50 MG EVERY DAY
     Route: 048
  12. LOVAZA [Concomitant]
     Indication: CROHN'S DISEASE
     Route: 048
  13. MULTI-VITAMINS [Concomitant]
     Indication: CROHN'S DISEASE
     Dosage: 1 TAB PER ORAL EVERY DAY
     Route: 048
  14. ASPIRIN [Concomitant]
  15. CALCIUM ACETATE [Concomitant]
     Indication: OSTEOPOROSIS
     Route: 048
  16. ASCORBIC ACID [Concomitant]
     Indication: VITAMIN C DEFICIENCY
     Route: 048
  17. TOPROL-XL [Concomitant]
     Indication: ARRHYTHMIA SUPRAVENTRICULAR
     Dosage: RESUMED THE DRUG LATER
     Route: 048
  18. NITROGLYCERIN [Concomitant]
     Indication: CHEST PAIN
  19. FLUTICASONE FUROATE [Concomitant]
     Indication: CHRONIC OBSTRUCTIVE PULMONARY DISEASE
     Dosage: 2 SPRAY INHALATION DAILY EACH NOSTRIL
     Route: 055
  20. PREDNISONE TAB [Concomitant]
     Indication: CROHN'S DISEASE
     Route: 048
     Dates: start: 20100214
  21. FIORICET [Concomitant]
     Indication: PAIN
     Route: 048
  22. SOLU-MEDROL [Concomitant]
     Indication: THROMBOCYTOPENIA
  23. LOVENOX [Concomitant]
     Indication: THROMBOSIS PROPHYLAXIS
  24. CERTOLIZUMAB PEGOL [Suspect]
     Indication: CROHN'S DISEASE
     Dosage: 400 MG
     Route: 058
     Dates: start: 20110222
  25. CITRACAL [Concomitant]
     Indication: CROHN'S DISEASE
     Route: 048
  26. CITRACAL + D [Concomitant]
     Indication: CROHN'S DISEASE
     Dosage: 250/200 MG ORAL DAILY
     Route: 048
  27. TRIAMTERENE AND HYDROCHLOROTHIAZIDE [Concomitant]
     Dosage: 75-50 MG DAILY
     Route: 048
  28. HZTZ [Concomitant]
     Indication: HYPERTENSION
     Dosage: 75/50 MG
     Route: 048
  29. AMIODARONE HCL [Suspect]
     Indication: ARRHYTHMIA
     Route: 048
  30. PULMICORT [Concomitant]
     Dosage: 0.25 MG/2ML
     Route: 055
  31. MULTI-VITAMINS [Concomitant]
     Indication: MEDICAL DIET
     Dosage: 1 TAB PER ORAL EVERY DAY
     Route: 048
  32. CITRACAL + D [Concomitant]
     Indication: OSTEOPOROSIS
     Dosage: 250/200 MG ORAL DAILY
     Route: 048
  33. CLARITIN [Concomitant]
     Indication: HYPERSENSITIVITY
     Route: 048
  34. CALCIUM CARBONATE [Concomitant]
     Route: 048
  35. BOOST [Concomitant]
     Indication: CROHN'S DISEASE
  36. SPIRIVA [Concomitant]
     Indication: CHRONIC OBSTRUCTIVE PULMONARY DISEASE
     Dosage: 1 PUFF DAILY
     Route: 055
  37. ZOSYN [Concomitant]
  38. PRILOSEC [Concomitant]
     Indication: PEPTIC ULCER
     Route: 048
  39. MESALAMINE [Concomitant]
     Dates: start: 19991203, end: 20040628
  40. DOXAZOSIN MESYLATE [Concomitant]
     Indication: HYPERTENSION
     Route: 048

REACTIONS (2)
  - UROSEPSIS [None]
  - HYPOTHYROIDISM [None]
